FAERS Safety Report 14935482 (Version 1)
Quarter: 2018Q2

REPORT INFORMATION
  Report Type: Spontaneous
  Country: US (occurrence: US)
  Receive Date: 20180507
  Receipt Date: 20180507
  Transmission Date: 20180711
  Serious: Yes (Hospitalization)
  Sender: FDA-Public Use
  Company Number: None

PATIENT
  Age: 49 Year
  Sex: Male

DRUGS (20)
  1. MUCINEX [Concomitant]
     Active Substance: GUAIFENESIN
  2. LISINOPRIL. [Concomitant]
     Active Substance: LISINOPRIL
  3. AZATHIOPRINE. [Concomitant]
     Active Substance: AZATHIOPRINE
  4. DOK [Concomitant]
     Active Substance: DOCUSATE SODIUM
  5. PROVENTIL [Concomitant]
     Active Substance: ALBUTEROL
  6. EXTRAACTION SYP [Concomitant]
  7. HYDROXYCHLOR [Concomitant]
     Active Substance: HYDROXYCHLOROQUINE
  8. IPRATROPUM/SOL ALBUTER [Concomitant]
  9. HYDROXYCHLOR [Concomitant]
     Active Substance: HYDROXYCHLOROQUINE
  10. VOLTAREN [Concomitant]
     Active Substance: DICLOFENAC SODIUM
  11. SYMBICORT [Concomitant]
     Active Substance: BUDESONIDE\FORMOTEROL FUMARATE DIHYDRATE
  12. ACTEMRA [Concomitant]
     Active Substance: TOCILIZUMAB
  13. METFORMIN [Concomitant]
     Active Substance: METFORMIN HYDROCHLORIDE
  14. MONTELUKAST [Concomitant]
     Active Substance: MONTELUKAST SODIUM
  15. CEFUROXIME. [Concomitant]
     Active Substance: CEFUROXIME
  16. ESBRIET [Suspect]
     Active Substance: PIRFENIDONE
     Indication: PULMONARY FIBROSIS
     Route: 048
     Dates: start: 20170830
  17. ALBUTEROL. [Concomitant]
     Active Substance: ALBUTEROL
  18. PREDNISONE. [Concomitant]
     Active Substance: PREDNISONE
  19. DOXYCYCL HYC [Concomitant]
  20. BENZONATATE. [Concomitant]
     Active Substance: BENZONATATE

REACTIONS (1)
  - Pneumonia [None]

NARRATIVE: CASE EVENT DATE: 201804
